FAERS Safety Report 10092304 (Version 1)
Quarter: 2014Q2

REPORT INFORMATION
  Report Type: Spontaneous
  Country: US (occurrence: US)
  Receive Date: 20140421
  Receipt Date: 20140421
  Transmission Date: 20141212
  Serious: No
  Sender: FDA-Public Use
  Company Number: US-SANOFI-AVENTIS-2013SA030690

PATIENT
  Age: 82 Year
  Sex: Female

DRUGS (5)
  1. ALLEGRA [Suspect]
     Indication: HYPERSENSITIVITY
     Route: 048
  2. ASTELIN [Suspect]
  3. ANTIHYPERTENSIVES [Concomitant]
  4. LIPITOR [Concomitant]
  5. SINGULAIR [Concomitant]

REACTIONS (2)
  - Dizziness [Unknown]
  - Somnolence [Unknown]
